FAERS Safety Report 19309252 (Version 2)
Quarter: 2021Q2

REPORT INFORMATION
  Report Type: Spontaneous
  Country: US (occurrence: US)
  Receive Date: 20210526
  Receipt Date: 20210608
  Transmission Date: 20210717
  Serious: Yes (Other)
  Sender: FDA-Public Use
  Company Number: US-BRAINTREE LABORATORIES, INC.-2021BTE00373

PATIENT
  Age: 64 Year
  Sex: Female
  Weight: 79.37 kg

DRUGS (3)
  1. NULYTELY [Suspect]
     Active Substance: POLYETHYLENE GLYCOL 3350\POTASSIUM CHLORIDE\SODIUM BICARBONATE\SODIUM CHLORIDE
     Indication: COLONOSCOPY
     Dosage: 1 TEASPOON MIXED WITH WATER, 1X
     Dates: start: 202105, end: 202105
  2. EPSOM SALT [Suspect]
     Active Substance: MAGNESIUM SULFATE
     Dosage: A SMALL AMOUNT, ^HARDLY NOTHING,^ ONCE
     Route: 061
     Dates: start: 202105
  3. VITAMIN D3 [Concomitant]
     Active Substance: CHOLECALCIFEROL
     Dosage: 2000 IU, 1X/DAY

REACTIONS (6)
  - Limb discomfort [None]
  - Throat irritation [Recovered/Resolved]
  - Burning sensation [Recovered/Resolved]
  - Dyspnoea [Recovered/Resolved]
  - Swelling face [Recovered/Resolved]
  - Swelling [Recovered/Resolved]

NARRATIVE: CASE EVENT DATE: 202105
